FAERS Safety Report 4641158-9 (Version None)
Quarter: 2005Q2

REPORT INFORMATION
  Report Type: 
  Country: None (occurrence: None)
  Receive Date: 20050421
  Receipt Date: 20050316
  Transmission Date: 20051028
  Serious: No
  Sender: FDA-Public Use
  Company Number: 200512129US

PATIENT
  Sex: Male

DRUGS (2)
  1. OPTICLIK (INSULIN INJECTION PEN) [Suspect]
     Dosage: DOSE: UNK
  2. LANTUS [Suspect]

REACTIONS (1)
  - BLOOD GLUCOSE INCREASED [None]
